FAERS Safety Report 7217845-5 (Version None)
Quarter: 2011Q1

REPORT INFORMATION
  Report Type: 
  Country: None (occurrence: None)
  Receive Date: 20110110
  Receipt Date: 20110105
  Transmission Date: 20110831
  Serious: Yes (Death, Other)
  Sender: FDA-Public Use
  Company Number: US-AMGEN-USASP2011000700

PATIENT

DRUGS (8)
  1. NITROGLYCERIN [Concomitant]
     Dosage: 5000 IU, 3 TIMES/WK
  2. SEVELAMER [Concomitant]
  3. ZEMPLAR [Concomitant]
     Dosage: UNK
  4. EPOGEN [Suspect]
     Indication: DIALYSIS
     Dosage: UNK UNK, 3 TIMES/WK
  5. ASPIRIN [Concomitant]
  6. SENSIPAR [Suspect]
     Indication: HYPERPARATHYROIDISM SECONDARY
  7. LOSARTAN POTASSIUM [Concomitant]
  8. HYDRALAZINE [Concomitant]

REACTIONS (2)
  - DEATH [None]
  - LEG AMPUTATION [None]
